FAERS Safety Report 10399221 (Version 1)
Quarter: 2014Q3

REPORT INFORMATION
  Report Type: Spontaneous
  Country: US (occurrence: None)
  Receive Date: 20140818
  Receipt Date: 20140818
  Transmission Date: 20150326
  Serious: Yes (Other)
  Sender: FDA-Public Use
  Company Number: None

PATIENT
  Age: 26 Year
  Sex: Female
  Weight: 70.31 kg

DRUGS (1)
  1. MIRENA [Suspect]
     Active Substance: LEVONORGESTREL
     Indication: CONTRACEPTION
     Dosage: 1 DEVICE, ONCE/FIVE YEARS, VAGINAL
     Route: 067
     Dates: start: 20120531, end: 20140815

REACTIONS (5)
  - Nausea [None]
  - Loss of consciousness [None]
  - Generalised tonic-clonic seizure [None]
  - Faecal incontinence [None]
  - Procedural pain [None]

NARRATIVE: CASE EVENT DATE: 20140801
